FAERS Safety Report 19420418 (Version 4)
Quarter: 2022Q3

REPORT INFORMATION
  Report Type: Spontaneous
  Country: GB (occurrence: GB)
  Receive Date: 20210616
  Receipt Date: 20220711
  Transmission Date: 20221027
  Serious: Yes (Hospitalization, Other)
  Sender: FDA-Public Use
  Company Number: GB-ROCHE-1757114

PATIENT
  Age: 57 Year
  Sex: Female

DRUGS (146)
  1. ANASTROZOLE [Suspect]
     Active Substance: ANASTROZOLE
     Indication: Breast cancer
     Dosage: 1 DOSAGE FORM, ONCE A DAY(1 MG, QD (1/DAY) )
     Route: 048
  2. ANASTROZOLE [Suspect]
     Active Substance: ANASTROZOLE
     Dosage: 1 MILLIGRAM, ONCE A DAY
     Route: 048
     Dates: start: 20151021
  3. EXEMESTANE [Suspect]
     Active Substance: EXEMESTANE
     Indication: Breast cancer metastatic
     Dosage: 25 MILLIGRAM, ONCE A DAY
     Route: 048
  4. EXEMESTANE [Suspect]
     Active Substance: EXEMESTANE
     Indication: Breast cancer
     Dosage: 25 MILLIGRAM, ONCE A DAY
     Route: 048
     Dates: start: 20090921
  5. EXEMESTANE [Suspect]
     Active Substance: EXEMESTANE
     Indication: Breast cancer metastatic
     Dosage: 25 MILLIGRAM, ONCE A DAY
     Route: 048
     Dates: start: 20150328
  6. EXEMESTANE [Suspect]
     Active Substance: EXEMESTANE
     Dosage: 25 MG, QD (1/DAY)
     Route: 048
     Dates: start: 20150921
  7. EXEMESTANE [Suspect]
     Active Substance: EXEMESTANE
     Dosage: 25 MILLIGRAM, ONCE A DAY
     Route: 048
     Dates: start: 20151021
  8. EXEMESTANE [Suspect]
     Active Substance: EXEMESTANE
     Dosage: 1 DOSAGE FORM, ONCE A DAY(1 DOSAGE FORM, QD )
     Route: 048
     Dates: start: 201607
  9. EXEMESTANE [Suspect]
     Active Substance: EXEMESTANE
     Dosage: 1 DOSAGE FORM
     Route: 048
     Dates: start: 201607
  10. HERCEPTIN [Suspect]
     Active Substance: TRASTUZUMAB
     Indication: Breast cancer metastatic
     Dosage: 462 MG LOADING DOSE 3/WEEK (CV)
     Route: 042
     Dates: start: 20150506
  11. HERCEPTIN [Suspect]
     Active Substance: TRASTUZUMAB
     Dosage: 1071 MILLIGRAM(357 MG, EVERY 3 WEEKS )
     Route: 042
     Dates: start: 20150527
  12. HERCEPTIN [Suspect]
     Active Substance: TRASTUZUMAB
     Dosage: 357 MG, TIW
     Route: 042
     Dates: start: 20150527
  13. TAXOTERE [Suspect]
     Active Substance: DOCETAXEL
     Indication: Breast cancer metastatic
     Dosage: 25 MILLIGRAM, ONCE A DAY
     Route: 048
     Dates: start: 20090921
  14. TAXOTERE [Suspect]
     Active Substance: DOCETAXEL
     Indication: Breast cancer
     Dosage: 25 MILLIGRAM, ONCE A DAY
     Route: 048
     Dates: start: 20150328
  15. TAXOTERE [Suspect]
     Active Substance: DOCETAXEL
     Indication: Breast cancer metastatic
     Dosage: 130 MG, Q3W (EVERY 3 WEEKS)
     Route: 042
     Dates: start: 20150507, end: 20150903
  16. TAXOTERE [Suspect]
     Active Substance: DOCETAXEL
     Dosage: 25 MILLIGRAM, ONCE A DAY
     Route: 048
     Dates: start: 20151021
  17. TAXOTERE [Suspect]
     Active Substance: DOCETAXEL
     Dosage: 100 MILLIGRAM, ONCE A DAY
     Route: 048
     Dates: start: 20160901, end: 20160930
  18. TAXOTERE [Suspect]
     Active Substance: DOCETAXEL
     Dosage: 100 MILLIGRAM, ONCE A DAY
     Route: 048
     Dates: start: 20161028, end: 20161028
  19. TAXOTERE [Suspect]
     Active Substance: DOCETAXEL
     Dosage: 100 MILLIGRAM, ONCE A DAY
     Route: 048
     Dates: start: 20161111
  20. PERJETA [Suspect]
     Active Substance: PERTUZUMAB
     Indication: Breast cancer metastatic
     Dosage: 840 MILLIGRAM
     Route: 042
     Dates: start: 20150507
  21. PERJETA [Suspect]
     Active Substance: PERTUZUMAB
     Indication: Breast cancer
     Dosage: 2520 MILLIGRAM,7 DAYS(LOADING DOSE )
     Route: 042
     Dates: start: 20150507
  22. PERJETA [Suspect]
     Active Substance: PERTUZUMAB
     Dosage: 420 MILLIGRAM, EVERY WEEK
     Route: 042
     Dates: start: 20150527
  23. PERJETA [Suspect]
     Active Substance: PERTUZUMAB
     Dosage: 420 MG, EVERY 3 WEEKS
     Route: 042
     Dates: start: 20150527
  24. PERJETA [Suspect]
     Active Substance: PERTUZUMAB
     Dosage: 357 MILLIGRAM EVERY 2 WEEKS
     Route: 042
     Dates: start: 20150527
  25. ADO-TRASTUZUMAB EMTANSINE [Suspect]
     Active Substance: ADO-TRASTUZUMAB EMTANSINE
     Indication: Breast cancer metastatic
     Dosage: 462 MILLIGRAM, EVERY 3 WEEKS (LOADING DOSE)
     Route: 042
     Dates: start: 20150506, end: 20150506
  26. ADO-TRASTUZUMAB EMTANSINE [Suspect]
     Active Substance: ADO-TRASTUZUMAB EMTANSINE
     Indication: Breast cancer
     Dosage: 357 MILLIGRAM, EVERY WEEK
     Route: 042
     Dates: start: 20150527
  27. ADO-TRASTUZUMAB EMTANSINE [Suspect]
     Active Substance: ADO-TRASTUZUMAB EMTANSINE
     Indication: Breast cancer metastatic
     Dosage: 1 DOSAGE FORM, EVERY WEEK(1 OT, QW (20 JUN 2017) )
     Route: 042
  28. ADO-TRASTUZUMAB EMTANSINE [Suspect]
     Active Substance: ADO-TRASTUZUMAB EMTANSINE
     Dosage: 357 MILLIGRAM,TWO WEEKS(357 MILLIGRAM, Q3W )
     Route: 042
     Dates: start: 20170620
  29. ADO-TRASTUZUMAB EMTANSINE [Suspect]
     Active Substance: ADO-TRASTUZUMAB EMTANSINE
     Dosage: 1071 MILLIGRAM, EVERY WEEK(1071 MG, QW (357 MG, EVERY 3 WEEKS, LAST DOSE N 30 JUN 2016) )
     Route: 042
     Dates: start: 20150527
  30. ADO-TRASTUZUMAB EMTANSINE [Suspect]
     Active Substance: ADO-TRASTUZUMAB EMTANSINE
     Dosage: 224 MILLIGRAM,3 WEEK
     Route: 042
     Dates: start: 20170620
  31. ADO-TRASTUZUMAB EMTANSINE [Suspect]
     Active Substance: ADO-TRASTUZUMAB EMTANSINE
     Dosage: 357 MG, QW
     Route: 042
     Dates: start: 20150527, end: 20160630
  32. ADO-TRASTUZUMAB EMTANSINE [Suspect]
     Active Substance: ADO-TRASTUZUMAB EMTANSINE
     Dosage: 357 MILLIGRAM,TWO WEEKS(357 MILLIGRAM, Q3W )
     Route: 042
     Dates: start: 20170620
  33. ADO-TRASTUZUMAB EMTANSINE [Suspect]
     Active Substance: ADO-TRASTUZUMAB EMTANSINE
     Dosage: UNK
  34. VINORELBINE TARTRATE [Suspect]
     Active Substance: VINORELBINE TARTRATE
     Indication: Breast cancer
     Dosage: 100 MG, QD
     Route: 048
     Dates: start: 20160901, end: 20160930
  35. VINORELBINE TARTRATE [Suspect]
     Active Substance: VINORELBINE TARTRATE
     Indication: Breast cancer metastatic
     Dosage: 100 MG, QD (1/DAY)
     Route: 048
     Dates: start: 20161028, end: 20161028
  36. VINORELBINE TARTRATE [Suspect]
     Active Substance: VINORELBINE TARTRATE
     Dosage: 100 MG, QD (1/DAY)
     Route: 048
     Dates: start: 20161111
  37. VINORELBINE TARTRATE [Suspect]
     Active Substance: VINORELBINE TARTRATE
     Dosage: UNK
  38. XELODA [Suspect]
     Active Substance: CAPECITABINE
     Indication: Breast cancer
     Dosage: 1650 MG (.5 DAY, TABLET)
     Route: 048
     Dates: start: 20160901, end: 20160914
  39. XELODA [Suspect]
     Active Substance: CAPECITABINE
     Dosage: 1650 MILLIGRAM
     Route: 048
     Dates: start: 20150901, end: 20160914
  40. XELODA [Suspect]
     Active Substance: CAPECITABINE
     Dosage: 3300 MILLIGRAM, ONCE A DAY
     Route: 048
  41. XELODA [Suspect]
     Active Substance: CAPECITABINE
     Dosage: UNK
  42. CALCIUM CARBONATE\CHOLECALCIFEROL [Concomitant]
     Active Substance: CALCIUM CARBONATE\CHOLECALCIFEROL
     Indication: Product used for unknown indication
     Dosage: UNK
     Route: 048
     Dates: end: 20171027
  43. AMITRIPTYLINE [Concomitant]
     Active Substance: AMITRIPTYLINE
     Indication: Product used for unknown indication
     Dosage: 10 MILLIGRAM, ONCE A DAY
     Route: 048
     Dates: start: 201603
  44. AMOXICILLIN [Concomitant]
     Active Substance: AMOXICILLIN
     Indication: Oropharyngeal pain
     Dosage: 9 DOSAGE FORM, ONCE A DAY(3 DF,  TID (3/DAY) )
     Route: 048
     Dates: start: 20151104, end: 20151111
  45. AMOXICILLIN [Concomitant]
     Active Substance: AMOXICILLIN
     Indication: Oropharyngeal pain
  46. ANASTROZOLE [Concomitant]
     Active Substance: ANASTROZOLE
     Indication: Product used for unknown indication
     Dosage: 1 MILLIGRAM, ONCE A DAY
     Route: 048
     Dates: start: 20151021
  47. APREPITANT [Concomitant]
     Active Substance: APREPITANT
     Indication: Prophylaxis
     Dosage: UNK
     Route: 065
     Dates: start: 20150527, end: 20150905
  48. APREPITANT [Concomitant]
     Active Substance: APREPITANT
     Indication: Prophylaxis
  49. BECLOMETHASONE DIPROPIONATE [Concomitant]
     Active Substance: BECLOMETHASONE DIPROPIONATE
     Indication: Wheezing
     Dosage: UNK(SUSPENSION AND SOLUTION FOR SPRAY )
     Route: 050
     Dates: start: 20160108
  50. BECLOMETHASONE DIPROPIONATE [Concomitant]
     Active Substance: BECLOMETHASONE DIPROPIONATE
     Indication: Wheezing
     Dosage: 400 MILLIGRAM
     Route: 050
     Dates: end: 20160108
  51. BISOPROLOL [Concomitant]
     Active Substance: BISOPROLOL
     Indication: Palpitations
     Dosage: 1.25 MILLIGRAM
     Route: 048
     Dates: start: 20160602
  52. BISOPROLOL [Concomitant]
     Active Substance: BISOPROLOL
     Dosage: UNK
     Route: 048
     Dates: start: 20160602
  53. CODEINE [Concomitant]
     Active Substance: CODEINE
     Indication: Diarrhoea
     Dosage: UNK
     Route: 048
     Dates: start: 20150603, end: 20150715
  54. CODEINE [Concomitant]
     Active Substance: CODEINE
     Indication: Palpitations
     Dosage: UNK
     Route: 048
     Dates: start: 20160811, end: 20161027
  55. CODEINE [Concomitant]
     Active Substance: CODEINE
     Indication: Premedication
     Dosage: UNK UNK, TWO TIMES A DAY
     Route: 048
     Dates: start: 20160727, end: 20160810
  56. CODEINE [Concomitant]
     Active Substance: CODEINE
     Indication: Epilepsy
     Dosage: 50 MILLIGRAM
     Route: 048
     Dates: start: 20160602, end: 20171027
  57. CODEINE [Concomitant]
     Active Substance: CODEINE
     Indication: Headache
     Dosage: 2 MILLIGRAM
     Route: 048
     Dates: start: 201612, end: 20170510
  58. CODEINE [Concomitant]
     Active Substance: CODEINE
     Indication: Muscle spasms
     Dosage: 200 MILLIGRAM
     Route: 048
     Dates: start: 20161123, end: 20171027
  59. CODEINE [Concomitant]
     Active Substance: CODEINE
     Indication: Urinary tract infection
     Dosage: 1 DOSAGE FORM, ONCE A DAY
     Route: 048
     Dates: start: 20161123, end: 20161130
  60. CODEINE [Concomitant]
     Active Substance: CODEINE
     Indication: Constipation
     Dosage: SUBSEQUENT DOSE RECEIVED ON 18/NOV/2016
     Route: 048
     Dates: start: 20150506, end: 2016
  61. CODEINE [Concomitant]
     Active Substance: CODEINE
     Indication: Cough
     Dosage: UNK
     Route: 048
     Dates: start: 20150508, end: 20150904
  62. CODEINE [Concomitant]
     Active Substance: CODEINE
     Dosage: UNK
     Route: 048
     Dates: start: 20170216, end: 20170830
  63. CODEINE [Concomitant]
     Active Substance: CODEINE
     Dosage: 1 DOSAGE FORM, ONCE A DAY
     Route: 048
     Dates: start: 20160713, end: 201607
  64. CODEINE [Concomitant]
     Active Substance: CODEINE
     Dosage: UNK
     Route: 048
     Dates: start: 20161111, end: 2016
  65. CODEINE [Concomitant]
     Active Substance: CODEINE
     Dosage: UNK
     Route: 048
     Dates: start: 20170209, end: 20170216
  66. CODEINE [Concomitant]
     Active Substance: CODEINE
     Dosage: UNK
     Route: 048
     Dates: start: 20160629, end: 20171027
  67. CODEINE [Concomitant]
     Active Substance: CODEINE
     Dosage: 250 MILLIGRAM
     Route: 048
     Dates: start: 20160727, end: 20171027
  68. CODEINE [Concomitant]
     Active Substance: CODEINE
     Dosage: 1 DOSAGE FORM, ONCE A DAY
     Route: 048
     Dates: start: 20161004, end: 20161123
  69. CODEINE [Concomitant]
     Active Substance: CODEINE
     Dosage: 2 MILLIGRAM
     Route: 048
     Dates: start: 20150504, end: 20150904
  70. CODEINE [Concomitant]
     Active Substance: CODEINE
     Dosage: 1 DOSAGE FORM
     Route: 048
     Dates: start: 20170201
  71. CODEINE [Concomitant]
     Active Substance: CODEINE
     Dosage: UNK
     Route: 048
     Dates: start: 20161221, end: 20170327
  72. CODEINE [Concomitant]
     Active Substance: CODEINE
     Dosage: 5 MILLIGRAM, ONCE A DAY
     Route: 048
     Dates: start: 20160308, end: 20160602
  73. CODEINE [Concomitant]
     Active Substance: CODEINE
     Dosage: 1 DOSAGE FORM, ONCE A DAY
     Route: 048
     Dates: start: 20150506, end: 20150717
  74. CODEINE [Concomitant]
     Active Substance: CODEINE
     Dosage: SUBSEQUENT DOSE RECEIVED ON 18/NOV/2016
     Route: 048
     Dates: start: 20170301, end: 2017
  75. CODEINE [Concomitant]
     Active Substance: CODEINE
     Dosage: UNK
     Route: 048
     Dates: start: 20161130, end: 20161201
  76. CODEINE [Concomitant]
     Active Substance: CODEINE
     Dosage: 1 DOSAGE FORM, ONCE A DAY
     Route: 048
     Dates: start: 201607, end: 20160921
  77. CODEINE [Concomitant]
     Active Substance: CODEINE
     Dosage: UNK
     Route: 048
     Dates: start: 20150603, end: 2015
  78. CODEINE [Concomitant]
     Active Substance: CODEINE
     Dosage: UNK
  79. CALAMINE [Concomitant]
     Active Substance: CALAMINE\FERRIC OXIDE RED\ZINC OXIDE
     Indication: Product used for unknown indication
     Dosage: 1 APPLICATION, AS NEEDED
     Route: 061
     Dates: start: 20150915
  80. CALCIUM GLUCONATE [Concomitant]
     Active Substance: CALCIUM GLUCONATE
     Indication: Product used for unknown indication
     Dosage: UNK
     Route: 065
     Dates: end: 20170201
  81. COCODAMOL [Concomitant]
     Active Substance: ACETAMINOPHEN\CODEINE PHOSPHATE
     Indication: Headache
     Dosage: UNK
     Route: 048
     Dates: start: 20160929, end: 20171027
  82. CODEINE PHOSPHATE [Concomitant]
     Active Substance: CODEINE PHOSPHATE
     Indication: Product used for unknown indication
     Dosage: 60 MILLIGRAM (QDS AS NEEDED)
     Route: 048
     Dates: start: 20150603
  83. CODEINE PHOSPHATE [Concomitant]
     Active Substance: CODEINE PHOSPHATE
     Indication: Product used for unknown indication
  84. CHLORHEXIDINE GLUCONATE [Concomitant]
     Active Substance: CHLORHEXIDINE GLUCONATE
     Indication: Mucosal inflammation
     Dosage: 1 MOUTH WASH AS NEEDED
     Route: 048
     Dates: start: 20150514, end: 20150715
  85. CHLORHEXIDINE GLUCONATE [Concomitant]
     Active Substance: CHLORHEXIDINE GLUCONATE
     Indication: Mucosal inflammation
  86. CYCLIZINE [Concomitant]
     Active Substance: CYCLIZINE
     Indication: Prophylaxis
     Dosage: 50 MILLIGRAM, 3 TIMES A DAY
     Route: 048
     Dates: start: 20150603
  87. CYCLIZINE [Concomitant]
     Active Substance: CYCLIZINE
     Dosage: 150 MILLIGRAM, ONCE A DAY
     Route: 048
     Dates: start: 20150603
  88. DEXAMETHASONE [Concomitant]
     Active Substance: DEXAMETHASONE
     Indication: Premedication
     Dosage: 2 MILLIGRAM
     Route: 065
     Dates: start: 20150504, end: 20150904
  89. DEXAMETHASONE [Concomitant]
     Active Substance: DEXAMETHASONE
     Indication: Product used for unknown indication
     Dosage: 1 DOSAGE FORM, ONCE A DAY(1 DOSAGE FORM, QD )
     Route: 048
     Dates: start: 201607, end: 20160921
  90. DEXAMETHASONE [Concomitant]
     Active Substance: DEXAMETHASONE
     Dosage: 8 MILLIGRAM, ONCE A DAY(8 MILLIGRAM, QD )
     Route: 048
     Dates: start: 20161130, end: 20161201
  91. DEXAMETHASONE [Concomitant]
     Active Substance: DEXAMETHASONE
     Dosage: 1 DOSAGE FORM, ONCE A DAY(1 DOSAGE FORM, QD )
     Route: 048
     Dates: start: 20150506, end: 20150717
  92. DEXAMETHASONE [Concomitant]
     Active Substance: DEXAMETHASONE
     Dosage: 1 DOSAGE FORM, ONCE A DAY(1 DOSAGE FORM )
     Route: 048
     Dates: start: 20161004, end: 20161123
  93. DEXAMETHASONE [Concomitant]
     Active Substance: DEXAMETHASONE
     Dosage: 2 MILLIGRAM(2 MILLIGRAM )
     Route: 065
     Dates: start: 20161014
  94. DEXAMETHASONE [Concomitant]
     Active Substance: DEXAMETHASONE
     Dosage: 1 DF, QD (1/DAY)
     Route: 048
     Dates: start: 20161123, end: 20161130
  95. DEXAMETHASONE [Concomitant]
     Active Substance: DEXAMETHASONE
     Dosage: 1 DOSAGE FORM, ONCE A DAY
     Route: 048
     Dates: start: 20170216, end: 20170830
  96. DEXAMETHASONE [Concomitant]
     Active Substance: DEXAMETHASONE
     Dosage: 2 MILLIGRAM, ONCE A DAY(2 MILLIGRAM, QD )
     Route: 048
     Dates: start: 201612, end: 20170510
  97. DEXAMETHASONE [Concomitant]
     Active Substance: DEXAMETHASONE
     Dosage: 2 MILLIGRAM
     Route: 065
     Dates: start: 20150504, end: 20150904
  98. DEXAMETHASONE [Concomitant]
     Active Substance: DEXAMETHASONE
     Dosage: 2 MG
     Route: 048
     Dates: start: 20160713, end: 20161004
  99. DEXAMETHASONE [Concomitant]
     Active Substance: DEXAMETHASONE
     Dosage: 1 DOSAGE FORM, ONCE A DAY(1 DOSAGE FORM, QD )
     Route: 048
     Dates: start: 20170216, end: 20170830
  100. FLUCONAZOLE [Concomitant]
     Active Substance: FLUCONAZOLE
     Indication: Product used for unknown indication
     Dosage: UNK
     Route: 048
     Dates: start: 20171004, end: 20171004
  101. FLUCLOXACILLIN [Concomitant]
     Active Substance: FLUCLOXACILLIN
     Indication: Nail infection
     Dosage: 750 MILLIGRAM, 3 TIMES A DAY(250 MILLIGRAM, TID )
     Route: 048
     Dates: start: 20150603, end: 20150610
  102. FLUCLOXACILLIN [Concomitant]
     Active Substance: FLUCLOXACILLIN
     Dosage: 750 MILLIGRAM, ONCE A DAY(750 MILLIGRAM, QD )
     Route: 048
  103. Gelclair [Concomitant]
     Indication: Product used for unknown indication
     Dosage: UNK
     Route: 065
     Dates: start: 20150514, end: 20150514
  104. IBUPROFEN [Concomitant]
     Active Substance: IBUPROFEN
     Indication: Headache
     Dosage: 1 DOSAGE FORM, ONCE A DAY(1 TABLET)
     Route: 048
     Dates: start: 20170201
  105. HYDROCORTISONE [Concomitant]
     Active Substance: HYDROCORTISONE
     Indication: Rash
     Dosage: UNK(LOTION APPLICATION )
     Route: 061
  106. KEPPRA [Concomitant]
     Active Substance: LEVETIRACETAM
     Indication: Epilepsy
     Dosage: 2 DOSAGE FORM, ONCE A DAY(1 DOSAGE FORM, BID )
     Route: 048
     Dates: start: 20160811, end: 20161027
  107. KEPPRA [Concomitant]
     Active Substance: LEVETIRACETAM
     Indication: Muscle twitching
     Dosage: 2 DOSAGE FORM, ONCE A DAY(1 DOSAGE FORM, BID )
     Route: 048
     Dates: start: 20160727, end: 20160810
  108. KEPPRA [Concomitant]
     Active Substance: LEVETIRACETAM
     Dosage: 250 MILLIGRAM(250 MG, UNK )
     Route: 048
     Dates: start: 20160727, end: 20171027
  109. KEPPRA [Concomitant]
     Active Substance: LEVETIRACETAM
     Dosage: UNK UNK, ONCE A DAY
     Route: 048
     Dates: start: 20160727, end: 20160810
  110. KEPPRA [Concomitant]
     Active Substance: LEVETIRACETAM
     Dosage: UNK UNK, ONCE A DAY
     Route: 048
     Dates: start: 20160811, end: 20161027
  111. LACTULOSE [Concomitant]
     Active Substance: LACTULOSE
     Indication: Neuralgia
     Dosage: UNK
     Route: 048
     Dates: start: 20161221, end: 20171021
  112. LACTULOSE [Concomitant]
     Active Substance: LACTULOSE
     Indication: Constipation
     Dosage: UNK,1 MONTH(MONTHLY )
     Route: 048
     Dates: start: 20170201, end: 201703
  113. LACTULOSE [Concomitant]
     Active Substance: LACTULOSE
     Indication: Product used for unknown indication
     Dosage: UNK
     Route: 048
     Dates: start: 201603, end: 20171021
  114. LANSOPRAZOLE [Concomitant]
     Active Substance: LANSOPRAZOLE
     Indication: Prophylaxis
     Dosage: UNK
     Route: 048
     Dates: start: 20150504, end: 20171027
  115. LANSOPRAZOLE [Concomitant]
     Active Substance: LANSOPRAZOLE
     Indication: Prophylaxis
  116. LEVETIRACETAM [Concomitant]
     Active Substance: LEVETIRACETAM
     Indication: Epilepsy
     Dosage: 250 MILLIGRAM
     Route: 048
     Dates: start: 20160727, end: 20171027
  117. LEVETIRACETAM [Concomitant]
     Active Substance: LEVETIRACETAM
     Indication: Muscle twitching
     Dosage: UNK UNK, ONCE A DAY
     Route: 048
     Dates: start: 20160811, end: 20161027
  118. LEVETIRACETAM [Concomitant]
     Active Substance: LEVETIRACETAM
     Dosage: UNK, TWO TIMES A DAY
     Route: 048
     Dates: start: 20160727, end: 20160810
  119. LEVETIRACETAM [Concomitant]
     Active Substance: LEVETIRACETAM
     Dosage: 250 MG
     Route: 048
     Dates: start: 20160727, end: 20161027
  120. LEVETIRACETAM [Concomitant]
     Active Substance: LEVETIRACETAM
     Dosage: UNK
  121. LOSARTAN [Concomitant]
     Active Substance: LOSARTAN
     Indication: Palpitations
     Dosage: 50 MILLIGRAM
     Route: 048
     Dates: start: 20160602, end: 20171027
  122. LOPERAMIDE [Concomitant]
     Active Substance: LOPERAMIDE
     Indication: Product used for unknown indication
     Dosage: 4 MILLIGRAM AS NEEDED
     Route: 048
     Dates: start: 20150514
  123. METOCLOPRAMIDE [Concomitant]
     Active Substance: METOCLOPRAMIDE
     Indication: Product used for unknown indication
     Dosage: 2 DOSAGE FORM, ONCE A DAY(2 DOSAGE FORM, QD )
     Route: 048
     Dates: start: 20170301, end: 2017
  124. METOCLOPRAMIDE [Concomitant]
     Active Substance: METOCLOPRAMIDE
     Dosage: UNK
     Route: 048
     Dates: start: 20170815, end: 2017
  125. METOCLOPRAMIDE [Concomitant]
     Active Substance: METOCLOPRAMIDE
     Dosage: 2 DOSAGE FORM, ONCE A DAY(2 DOSAGE FORM, QD )
     Route: 048
     Dates: start: 20170301, end: 2017
  126. METOCLOPRAMIDE [Concomitant]
     Active Substance: METOCLOPRAMIDE
     Dosage: UNK(SUBSEQUENT DOSE RECEIVED ON 18/NOV/2016 )
     Route: 048
     Dates: start: 20150506, end: 2016
  127. METOCLOPRAMIDE [Concomitant]
     Active Substance: METOCLOPRAMIDE
     Dosage: UNK
     Route: 048
     Dates: start: 20170815, end: 2017
  128. METOCLOPRAMIDE [Concomitant]
     Active Substance: METOCLOPRAMIDE
     Dosage: 2 DOSAGE FORM, ONCE A DAY
     Route: 048
     Dates: start: 20150506, end: 20150903
  129. METOCLOPRAMIDE [Concomitant]
     Active Substance: METOCLOPRAMIDE
     Dosage: 2 DF, QD (1/DAY)
     Route: 048
     Dates: start: 20150506, end: 2017
  130. NITROFURANTOIN [Concomitant]
     Active Substance: NITROFURANTOIN
     Indication: Product used for unknown indication
     Dosage: UNK
     Route: 065
     Dates: start: 20170621, end: 20170623
  131. ONDANSETRON [Concomitant]
     Active Substance: ONDANSETRON
     Indication: Product used for unknown indication
     Dosage: UNK
     Route: 048
     Dates: start: 20150508, end: 20150904
  132. ONDANSETRON [Concomitant]
     Active Substance: ONDANSETRON
     Dosage: UNK
     Route: 048
     Dates: start: 20161111, end: 2016
  133. ACETAMINOPHEN [Concomitant]
     Active Substance: ACETAMINOPHEN
     Indication: Headache
     Dosage: UNK
     Route: 058
     Dates: start: 20150506, end: 20150903
  134. ACETAMINOPHEN [Concomitant]
     Active Substance: ACETAMINOPHEN
     Dosage: UNK
     Route: 048
     Dates: start: 20160629, end: 20171027
  135. PEGFILGRASTIM [Concomitant]
     Active Substance: PEGFILGRASTIM
     Indication: Product used for unknown indication
     Dosage: UNK, UNKNOWN
     Route: 058
     Dates: start: 20150506, end: 20150903
  136. CHLORPHENIRAMINE MALEATE [Concomitant]
     Active Substance: CHLORPHENIRAMINE MALEATE
     Indication: Rash
     Dosage: 5 MILLIGRAM
     Route: 048
     Dates: start: 20150725
  137. QUININE SULFATE [Concomitant]
     Active Substance: QUININE SULFATE
     Indication: Muscle spasms
     Dosage: 200 MILLIGRAM
     Route: 048
     Dates: start: 20161123
  138. RAMIPRIL [Concomitant]
     Active Substance: RAMIPRIL
     Indication: Cough
     Dosage: 435 MILLIGRAM
     Route: 048
  139. RAMIPRIL [Concomitant]
     Active Substance: RAMIPRIL
     Indication: Palpitations
     Dosage: 5 MILLIGRAM, ONCE A DAY(5 MG, QD (1/DAY) )
     Route: 048
     Dates: start: 20160308, end: 20161005
  140. RAMIPRIL [Concomitant]
     Active Substance: RAMIPRIL
     Indication: Palpitations
     Dosage: UNK
     Route: 065
  141. SENNA LEAF [Concomitant]
     Active Substance: SENNA LEAF
     Indication: Constipation
     Dosage: UNK
     Route: 048
     Dates: start: 20161221, end: 20170327
  142. SENNA [Concomitant]
     Active Substance: SENNA LEAF\SENNOSIDES\SENNOSIDES A AND B
     Indication: Constipation
     Dosage: UNK
     Route: 048
     Dates: start: 20161221, end: 20170327
  143. SPIRONOLACTONE [Concomitant]
     Active Substance: SPIRONOLACTONE
     Indication: Palpitations
     Dosage: UNK
     Route: 048
     Dates: start: 20160602, end: 20171027
  144. SPIRONOLACTONE [Concomitant]
     Active Substance: SPIRONOLACTONE
     Indication: Palpitations
  145. TRIMETHOPRIM [Concomitant]
     Active Substance: TRIMETHOPRIM
     Indication: Urinary tract infection
     Dosage: UNK
     Route: 048
     Dates: start: 20170209, end: 20170216
  146. VENTOLIN [Concomitant]
     Active Substance: ALBUTEROL SULFATE
     Indication: Wheezing
     Dosage: UNK
     Route: 065
     Dates: start: 20170621, end: 2017

REACTIONS (30)
  - Neuralgia [Not Recovered/Not Resolved]
  - Urinary tract infection [Recovered/Resolved]
  - Seizure [Unknown]
  - Poor peripheral circulation [Unknown]
  - Vaginal discharge [Recovered/Resolved]
  - Palpitations [Not Recovered/Not Resolved]
  - Rash [Recovered/Resolved]
  - Depressed mood [Not Recovered/Not Resolved]
  - Oropharyngeal pain [Recovered/Resolved]
  - Nasopharyngitis [Recovered/Resolved]
  - Neuropathy peripheral [Not Recovered/Not Resolved]
  - Alopecia [Unknown]
  - Chest pain [Recovered/Resolved]
  - Headache [Recovered/Resolved]
  - Dizziness [Unknown]
  - Abdominal pain [Unknown]
  - Nail infection [Recovered/Resolved]
  - Hiccups [Recovered/Resolved]
  - Fatigue [Not Recovered/Not Resolved]
  - Lacrimation increased [Not Recovered/Not Resolved]
  - Muscle twitching [Unknown]
  - Mucosal inflammation [Unknown]
  - Left ventricular dysfunction [Not Recovered/Not Resolved]
  - Muscle spasms [Unknown]
  - Nausea [Recovered/Resolved]
  - Constipation [Recovered/Resolved]
  - Diarrhoea [Recovered/Resolved]
  - Weight decreased [Unknown]
  - Cough [Recovered/Resolved]
  - Nail disorder [Recovered/Resolved]

NARRATIVE: CASE EVENT DATE: 20150508
